FAERS Safety Report 13549810 (Version 1)
Quarter: 2017Q2

REPORT INFORMATION
  Report Type: Spontaneous
  Country: BH (occurrence: BH)
  Receive Date: 20170516
  Receipt Date: 20170516
  Transmission Date: 20170830
  Serious: Yes (Other)
  Sender: FDA-Public Use
  Company Number: BH-ORPHAN EUROPE-2020802

PATIENT
  Age: 6 Year
  Sex: Male
  Weight: 30 kg

DRUGS (3)
  1. CARBAGLU [Suspect]
     Active Substance: CARGLUMIC ACID
     Indication: HYPERAMMONAEMIA
     Route: 048
     Dates: start: 20160727
  2. SODIUM BENZOATE [Concomitant]
     Active Substance: SODIUM BENZOATE
     Dates: start: 20140901, end: 20160727
  3. ARGININE [Concomitant]
     Active Substance: ARGININE
     Route: 042
     Dates: start: 20160727, end: 20160727

REACTIONS (1)
  - Off label use [Recovered/Resolved]
